FAERS Safety Report 5970440-8 (Version None)
Quarter: 2008Q4

REPORT INFORMATION
  Report Type: 
  Country: None (occurrence: None)
  Receive Date: 20081126
  Receipt Date: 20081023
  Transmission Date: 20090506
  Serious: No
  Sender: FDA-Public Use
  Company Number: US-ABBOTT-08P-163-0483802-00

PATIENT
  Sex: Male

DRUGS (7)
  1. SIMCOR [Suspect]
     Indication: HIGH DENSITY LIPOPROTEIN DECREASED
     Dosage: UNKNOWN
  2. SIMCOR [Suspect]
     Indication: LOW DENSITY LIPOPROTEIN INCREASED
  3. SIMCOR [Suspect]
     Indication: BLOOD TRIGLYCERIDES INCREASED
  4. ALPRAZOLAM [Concomitant]
     Indication: ANXIOLYTIC THERAPY
  5. QUINAPRIL [Concomitant]
     Indication: BLOOD PRESSURE
  6. DYAZIDE [Concomitant]
     Indication: BLOOD PRESSURE
  7. UNKNOWN VITAMIN SUPPLEMENTS [Concomitant]
     Indication: DRUG USE FOR UNKNOWN INDICATION
     Dosage: NOT REPORTED

REACTIONS (2)
  - ERYTHEMA [None]
  - PRURITUS [None]
